FAERS Safety Report 9145929 (Version 1)
Quarter: 2013Q1

REPORT INFORMATION
  Report Type: Spontaneous
  Country: AU (occurrence: AU)
  Receive Date: 20130307
  Receipt Date: 20130307
  Transmission Date: 20140127
  Serious: Yes (Hospitalization)
  Sender: FDA-Public Use
  Company Number: AU-NOVOPROD-372298

PATIENT
  Sex: Female

DRUGS (2)
  1. NOVORAPID [Suspect]
     Indication: TYPE 1 DIABETES MELLITUS
     Route: 065
  2. LEVEMIR [Concomitant]
     Indication: TYPE 1 DIABETES MELLITUS
     Route: 065

REACTIONS (2)
  - Accidental overdose [Unknown]
  - Cerebrovascular accident [Unknown]
